FAERS Safety Report 9959629 (Version 1)
Quarter: 2014Q1

REPORT INFORMATION
  Report Type: Spontaneous
  Country: US (occurrence: None)
  Receive Date: 20140228
  Receipt Date: 20140228
  Transmission Date: 20141002
  Serious: No
  Sender: FDA-Public Use
  Company Number: None

PATIENT
  Age: 72 Year
  Sex: Female

DRUGS (1)
  1. APOKYN [Suspect]
     Indication: PARKINSON^S DISEASE
     Dosage: 0.3 ML NOT TO EXCEED 4 DOSES PER DAY
     Route: 058
     Dates: start: 20140113

REACTIONS (3)
  - Nasopharyngitis [None]
  - Somnolence [None]
  - Feeling jittery [None]
